FAERS Safety Report 5342525-0 (Version None)
Quarter: 2007Q2

REPORT INFORMATION
  Report Type: 
  Country: None (occurrence: None)
  Receive Date: 20070601
  Receipt Date: 20070523
  Transmission Date: 20071010
  Serious: Yes (Disabling)
  Sender: FDA-Public Use
  Company Number: DE-PFIZER INC-2007021400

PATIENT
  Sex: Female
  Weight: 55 kg

DRUGS (3)
  1. ATORVASTATIN CALCIUM [Suspect]
     Indication: HYPERCHOLESTEROLAEMIA
     Route: 048
     Dates: start: 20030422, end: 20030603
  2. EZETROL [Suspect]
     Indication: HYPERCHOLESTEROLAEMIA
     Dosage: FREQ:DAILY
     Route: 048
     Dates: start: 20030422, end: 20051201
  3. DECORTIN [Concomitant]
     Route: 048

REACTIONS (1)
  - POLYMYALGIA RHEUMATICA [None]
